FAERS Safety Report 12899475 (Version 3)
Quarter: 2017Q1

REPORT INFORMATION
  Report Type: Spontaneous
  Country: US (occurrence: US)
  Receive Date: 20161101
  Receipt Date: 20170222
  Transmission Date: 20170428
  Serious: Yes (Disabling)
  Sender: FDA-Public Use
  Company Number: US-JNJFOC-20161100189

PATIENT
  Age: 86 Year
  Sex: Male
  Weight: 95.26 kg

DRUGS (2)
  1. LEVAQUIN [Suspect]
     Active Substance: LEVOFLOXACIN
     Indication: URINARY TRACT INFECTION
     Route: 042
     Dates: start: 2015
  2. CIPRO [Suspect]
     Active Substance: CIPROFLOXACIN HYDROCHLORIDE
     Indication: URINARY TRACT INFECTION
     Route: 042
     Dates: start: 2015

REACTIONS (10)
  - Decubitus ulcer [Unknown]
  - Chills [Unknown]
  - Anxiety [Unknown]
  - Toxicity to various agents [Unknown]
  - Dizziness [Unknown]
  - Tendonitis [Unknown]
  - Insomnia [Unknown]
  - Neuropathy peripheral [Not Recovered/Not Resolved]
  - Asthenia [Unknown]
  - Feeling abnormal [Unknown]

NARRATIVE: CASE EVENT DATE: 201512
